FAERS Safety Report 16715945 (Version 1)
Quarter: 2019Q3

REPORT INFORMATION
  Report Type: Spontaneous
  Country: CA (occurrence: CA)
  Receive Date: 20190819
  Receipt Date: 20190819
  Transmission Date: 20191005
  Serious: Yes (Hospitalization)
  Sender: FDA-Public Use
  Company Number: CA-PFIZER INC-2019349349

PATIENT
  Sex: Female

DRUGS (7)
  1. HUMIRA [Suspect]
     Active Substance: ADALIMUMAB
     Indication: RHEUMATOID ARTHRITIS
     Dosage: 40 MG, UNK
     Route: 058
  2. ARAVA [Suspect]
     Active Substance: LEFLUNOMIDE
     Dosage: UNK UNK, 1 EVERY 1 DAY(S)
     Route: 065
  3. ORENCIA [Concomitant]
     Active Substance: ABATACEPT
     Dosage: 125 MG, UNK
     Route: 058
  4. METHOTREXATE SODIUM. [Suspect]
     Active Substance: METHOTREXATE SODIUM
     Dosage: 25 MG, 1 EVERY 1 WEEK(S)
     Route: 065
  5. RITUXAN [Concomitant]
     Active Substance: RITUXIMAB
     Dosage: 1000 MG, UNK
  6. CIMZIA [Suspect]
     Active Substance: CERTOLIZUMAB PEGOL
     Dosage: 400 MG, 1 EVERY 2 WEEK(S)
     Route: 058
  7. ORENCIA [Concomitant]
     Active Substance: ABATACEPT
     Indication: PRODUCT USED FOR UNKNOWN INDICATION
     Dosage: 125 MG, UNK
     Route: 042

REACTIONS (4)
  - Nausea [Unknown]
  - Drug intolerance [Unknown]
  - Obstructive pancreatitis [Unknown]
  - Vomiting [Unknown]
